FAERS Safety Report 10178698 (Version 1)
Quarter: 2014Q2

REPORT INFORMATION
  Report Type: Spontaneous
  Country: US (occurrence: None)
  Receive Date: 20140516
  Receipt Date: 20140516
  Transmission Date: 20141212
  Serious: No
  Sender: FDA-Public Use
  Company Number: None

PATIENT
  Age: 69 Year
  Sex: Male
  Weight: 63.2 kg

DRUGS (1)
  1. ERLOTINIB [Suspect]
     Dates: start: 20140329, end: 20140508

REACTIONS (3)
  - Malnutrition [None]
  - Weight decreased [None]
  - Eating disorder [None]
